FAERS Safety Report 23530054 (Version 2)
Quarter: 2024Q2

REPORT INFORMATION
  Report Type: Report from Study
  Country: US (occurrence: US)
  Receive Date: 20240216
  Receipt Date: 20240416
  Transmission Date: 20240716
  Serious: Yes (Other)
  Sender: FDA-Public Use
  Company Number: US-ARGENX-2023-ARGX-US003697

PATIENT

DRUGS (2)
  1. VYVGART [Suspect]
     Active Substance: EFGARTIGIMOD ALFA-FCAB
     Indication: Myasthenia gravis
     Dosage: 10 MG/KG
     Route: 042
     Dates: start: 20231023
  2. HUMAN IMMUNOGLOBULIN G [Concomitant]
     Active Substance: HUMAN IMMUNOGLOBULIN G
     Indication: Product used for unknown indication
     Route: 042

REACTIONS (10)
  - Nephrolithiasis [Unknown]
  - Back pain [Recovered/Resolved]
  - Procedural headache [Recovered/Resolved]
  - Abdominal discomfort [Unknown]
  - Abdominal distension [Unknown]
  - Flatulence [Unknown]
  - Hiccups [Unknown]
  - Blood creatinine increased [Unknown]
  - Glomerular filtration rate decreased [Unknown]
  - Muscular weakness [Unknown]

NARRATIVE: CASE EVENT DATE: 20231023
